FAERS Safety Report 7022413 (Version 4)
Quarter: 2015Q1

REPORT INFORMATION
  Report Type: Report from Study
  Country: JP (occurrence: JP)
  Receive Date: 20090612
  Receipt Date: 20150202
  Transmission Date: 20150721
  Serious: Yes (Hospitalization)
  Sender: FDA-Public Use
  Company Number: PHHY2009JP15887

PATIENT
  Age: 58 Year
  Sex: Male
  Weight: 70 kg

DRUGS (13)
  1. NEORAL [Suspect]
     Active Substance: CYCLOSPORINE
     Indication: APLASTIC ANAEMIA
     Dosage: 150 MG, DAILY
     Route: 048
     Dates: start: 20080812, end: 20081202
  2. NEOSTELIN GREEN [Concomitant]
     Indication: STOMATITIS
     Dosage: UNK
     Route: 065
     Dates: start: 20120904, end: 20130204
  3. ICL670A [Suspect]
     Active Substance: DEFERASIROX
     Indication: IRON OVERLOAD
     Dosage: 1000 MG, DAILY
     Route: 048
     Dates: start: 200808, end: 20090707
  4. ICL670A [Suspect]
     Active Substance: DEFERASIROX
     Dosage: 500 MG, QD
     Route: 048
     Dates: start: 20121016, end: 20130813
  5. NEORAL [Suspect]
     Active Substance: CYCLOSPORINE
     Route: 048
     Dates: start: 20080812, end: 20081202
  6. DESFERAL [Concomitant]
     Active Substance: DEFEROXAMINE MESYLATE
     Route: 030
     Dates: start: 20060905, end: 20080812
  7. LENDORMIN BOEHRINGER [Concomitant]
     Active Substance: BROTIZOLAM
     Indication: INSOMNIA
     Dosage: 0.25 MG, UNK
     Route: 048
     Dates: start: 20121217, end: 20121217
  8. ICL670A [Suspect]
     Active Substance: DEFERASIROX
     Dosage: 1500 MG, QD
     Route: 048
     Dates: start: 20110813, end: 20110829
  9. ICL670A [Suspect]
     Active Substance: DEFERASIROX
     Dosage: 1000 MG, QD
     Route: 048
     Dates: start: 20110830, end: 20121015
  10. MYSLEE [Concomitant]
     Active Substance: ZOLPIDEM TARTRATE
     Indication: INSOMNIA
     Dosage: 5 MG, UNK
     Route: 048
     Dates: start: 20120918, end: 20121210
  11. ICL670A [Suspect]
     Active Substance: DEFERASIROX
     Dosage: 1500 MG, QD
     Route: 048
     Dates: start: 20090708
  12. DANAZOL. [Concomitant]
     Active Substance: DANAZOL
     Indication: APLASTIC ANAEMIA
     Dosage: 200 MG, UNK
     Route: 048
     Dates: start: 20080812
  13. DANAZOL. [Concomitant]
     Active Substance: DANAZOL
     Dosage: 200 MG, UNK
     Route: 048
     Dates: start: 20120812, end: 20130415

REACTIONS (17)
  - Renal impairment [Recovered/Resolved]
  - Blood creatinine increased [Recovering/Resolving]
  - Pharyngitis [Recovered/Resolved]
  - Upper respiratory tract infection [Recovered/Resolved]
  - Febrile neutropenia [Recovered/Resolved]
  - Upper respiratory tract infection [Recovered/Resolved]
  - Gingival bleeding [Recovered/Resolved]
  - Epistaxis [Recovered/Resolved]
  - Febrile neutropenia [Recovered/Resolved]
  - Upper respiratory tract infection [Recovered/Resolved]
  - Pharyngitis [Recovered/Resolved]
  - Upper respiratory tract infection [Recovered/Resolved]
  - Upper respiratory tract infection [Recovered/Resolved]
  - Stomatitis [Not Recovered/Not Resolved]
  - Subcutaneous abscess [Recovered/Resolved]
  - Upper respiratory tract infection [Recovered/Resolved]
  - Epistaxis [Recovered/Resolved]

NARRATIVE: CASE EVENT DATE: 20080905
